FAERS Safety Report 25558835 (Version 1)
Quarter: 2025Q3

REPORT INFORMATION
  Report Type: Spontaneous
  Country: IL (occurrence: IL)
  Receive Date: 20250715
  Receipt Date: 20250715
  Transmission Date: 20251020
  Serious: Yes (Hospitalization)
  Sender: ASTELLAS
  Company Number: IL-ASTELLAS-2025-AER-037393

PATIENT
  Age: 61 Year
  Sex: Male

DRUGS (8)
  1. MIRABEGRON [Suspect]
     Active Substance: MIRABEGRON
     Indication: Product used for unknown indication
     Route: 065
  2. DEXAMETHASONE [Concomitant]
     Active Substance: DEXAMETHASONE
     Indication: Product used for unknown indication
     Route: 065
  3. AMIODARONE HYDROCHLORIDE [Concomitant]
     Active Substance: AMIODARONE HYDROCHLORIDE
     Indication: Product used for unknown indication
     Route: 065
  4. VALPROIC ACID [Concomitant]
     Active Substance: VALPROIC ACID
     Indication: Product used for unknown indication
     Route: 065
  5. NEXIUM [Concomitant]
     Active Substance: ESOMEPRAZOLE MAGNESIUM
     Indication: Product used for unknown indication
     Route: 065
  6. LYRICA [Concomitant]
     Active Substance: PREGABALIN
     Indication: Product used for unknown indication
     Route: 065
  7. MEMOX [Concomitant]
     Indication: Product used for unknown indication
     Route: 065
  8. STATOR [ATORVASTATIN CALCIUM] [Concomitant]
     Indication: Product used for unknown indication
     Route: 065

REACTIONS (4)
  - Urinary retention [Unknown]
  - Asthenia [Unknown]
  - Hypophagia [Unknown]
  - Diarrhoea [Unknown]
